FAERS Safety Report 8818097 (Version 1)
Quarter: 2012Q4

REPORT INFORMATION
  Report Type: 
  Country: FR (occurrence: FR)
  Receive Date: 20121001
  Receipt Date: 20121001
  Transmission Date: 20130627
  Serious: Yes (Life-Threatening, Hospitalization)
  Sender: FDA-Public Use
  Company Number: FR-ASTRAZENECA-2012SE74618

PATIENT
  Sex: Female

DRUGS (3)
  1. XEROQUEL [Suspect]
     Indication: BIPOLAR DISORDER
     Route: 048
     Dates: start: 201207
  2. XEROQUEL [Suspect]
     Indication: BIPOLAR DISORDER
     Dosage: TOOK 15 TABLETS OF SEROQUEL
     Route: 048
     Dates: start: 201209
  3. LITHIUM [Concomitant]
     Route: 048

REACTIONS (4)
  - Suicide attempt [Recovered/Resolved]
  - Hypothermia [Recovered/Resolved]
  - Sleep disorder [Not Recovered/Not Resolved]
  - Intentional drug misuse [Recovered/Resolved]
